FAERS Safety Report 18181060 (Version 2)
Quarter: 2020Q3

REPORT INFORMATION
  Report Type: Report from Study
  Country: US (occurrence: US)
  Receive Date: 20200821
  Receipt Date: 20200828
  Transmission Date: 20201103
  Serious: Yes (Hospitalization)
  Sender: FDA-Public Use
  Company Number: US-VERTEX PHARMACEUTICALS-2020-016789

PATIENT
  Age: 11 Year
  Sex: Female

DRUGS (4)
  1. TOBRAMYCIN. [Concomitant]
     Active Substance: TOBRAMYCIN
  2. PULMOZYME [Concomitant]
     Active Substance: DORNASE ALFA
  3. ORKAMBI [Suspect]
     Active Substance: IVACAFTOR\LUMACAFTOR
     Indication: CYSTIC FIBROSIS
     Dosage: 2 DOSAGE FORM, BID
     Route: 048
     Dates: start: 20180503, end: 20200813
  4. ALBUTEROL [SALBUTAMOL] [Concomitant]
     Active Substance: ALBUTEROL

REACTIONS (2)
  - Pulmonary function test decreased [Not Recovered/Not Resolved]
  - Weight increased [Unknown]

NARRATIVE: CASE EVENT DATE: 202008
